FAERS Safety Report 4770796-8 (Version None)
Quarter: 2005Q3

REPORT INFORMATION
  Report Type: 
  Country: None (occurrence: None)
  Receive Date: 20050914
  Receipt Date: 20050825
  Transmission Date: 20060218
  Serious: Yes (Hospitalization)
  Sender: FDA-Public Use
  Company Number: DSA_26074_2005

PATIENT
  Age: 77 Year
  Sex: Female

DRUGS (6)
  1. DILTIAZEM HYDROCHLORIDE [Suspect]
     Dosage: DF PO
     Route: 048
     Dates: start: 20050104, end: 20050115
  2. TOPALGIC [Concomitant]
  3. ENALAPRIL MALEATE [Concomitant]
  4. LASILIX [Concomitant]
  5. OXEOL [Concomitant]
  6. RILMENIDINE [Concomitant]

REACTIONS (6)
  - ACUTE GENERALISED EXANTHEMATOUS PUSTULOSIS [None]
  - DERMATITIS EXFOLIATIVE [None]
  - LEUKOCYTOSIS [None]
  - PYREXIA [None]
  - SEBORRHOEIC KERATOSIS [None]
  - SKIN TEST POSITIVE [None]
